FAERS Safety Report 17337040 (Version 2)
Quarter: 2020Q1

REPORT INFORMATION
  Report Type: Spontaneous
  Country: BR (occurrence: BR)
  Receive Date: 20200129
  Receipt Date: 20200206
  Transmission Date: 20200409
  Serious: Yes (Other)
  Sender: FDA-Public Use
  Company Number: BR-AMGEN-BRASP2020014495

PATIENT
  Age: 74 Year
  Sex: Male
  Weight: 71.8 kg

DRUGS (1)
  1. ENBREL [Suspect]
     Active Substance: ETANERCEPT
     Indication: RHEUMATOID ARTHRITIS
     Dosage: 1 APPLICATION PER WEEK
     Route: 065
     Dates: start: 2015, end: 201903

REACTIONS (3)
  - Disease recurrence [Recovered/Resolved]
  - Decreased immune responsiveness [Recovered/Resolved]
  - Uveitis [Recovered/Resolved]

NARRATIVE: CASE EVENT DATE: 201903
